FAERS Safety Report 7600600-1 (Version None)
Quarter: 2011Q3

REPORT INFORMATION
  Report Type: 
  Country: None (occurrence: None)
  Receive Date: 20110711
  Receipt Date: 20110707
  Transmission Date: 20111222
  Serious: Yes (Hospitalization)
  Sender: FDA-Public Use
  Company Number: FR-TEVA-289642ISR

PATIENT
  Sex: Male

DRUGS (3)
  1. MODOPAR (BENSERAZIDE-LEVODOPA) [Suspect]
     Indication: PARKINSON'S DISEASE
     Dosage: 1750 MILLIGRAM;
     Route: 048
     Dates: start: 20090101
  2. AZILECT [Suspect]
     Indication: PARKINSON'S DISEASE
     Dosage: 1 MILLIGRAM;
     Route: 048
     Dates: start: 20100801, end: 20110513
  3. RIVASTIGMINE [Suspect]
     Indication: DEMENTIA
     Dosage: 12 MILLIGRAM;
     Route: 048
     Dates: start: 20100101

REACTIONS (1)
  - PEMPHIGOID [None]
